FAERS Safety Report 5761247-5 (Version None)
Quarter: 2008Q2

REPORT INFORMATION
  Report Type: 
  Country: None (occurrence: None)
  Receive Date: 20080606
  Receipt Date: 20080530
  Transmission Date: 20081010
  Serious: Yes (Hospitalization)
  Sender: FDA-Public Use
  Company Number: FR-AMGEN-UK277897

PATIENT
  Sex: Male
  Weight: 73 kg

DRUGS (10)
  1. PANITUMUMAB [Suspect]
     Indication: SQUAMOUS CELL CARCINOMA
     Route: 042
     Dates: start: 20071016, end: 20071016
  2. PANITUMUMAB [Suspect]
     Route: 042
     Dates: start: 20080505, end: 20080505
  3. PANITUMUMAB [Suspect]
     Dates: start: 20071106, end: 20071106
  4. PANITUMUMAB [Suspect]
     Dates: start: 20071127, end: 20071127
  5. PANITUMUMAB [Suspect]
     Dates: start: 20071217, end: 20071217
  6. PANITUMUMAB [Suspect]
     Dates: start: 20080204, end: 20080204
  7. PANITUMUMAB [Suspect]
     Dates: start: 20080317, end: 20080317
  8. PANITUMUMAB [Suspect]
     Dates: start: 20080414, end: 20080414
  9. MAGNESIUM CARBONATE [Concomitant]
     Route: 048
     Dates: start: 20080505
  10. MAGNESIUM CHLORIDE [Concomitant]
     Route: 042
     Dates: start: 20080505, end: 20080505

REACTIONS (8)
  - CHILLS [None]
  - CONDITION AGGRAVATED [None]
  - DERMATITIS [None]
  - HYPERTENSION [None]
  - HYPOMAGNESAEMIA [None]
  - INFUSION RELATED REACTION [None]
  - SKIN FISSURES [None]
  - TREMOR [None]
